FAERS Safety Report 11118715 (Version 1)
Quarter: 2015Q2

REPORT INFORMATION
  Report Type: Spontaneous
  Country: US (occurrence: None)
  Receive Date: 20150515
  Receipt Date: 20150515
  Transmission Date: 20150821
  Serious: Yes (Hospitalization)
  Sender: FDA-Public Use
  Company Number: None

PATIENT
  Age: 68 Year
  Sex: Male
  Weight: 113.6 kg

DRUGS (1)
  1. FLUOROURACIL. [Suspect]
     Active Substance: FLUOROURACIL
     Indication: SQUAMOUS CELL CARCINOMA OF SKIN
     Dates: start: 20140604, end: 20150301

REACTIONS (6)
  - Skin abrasion [None]
  - Skin irritation [None]
  - Urticaria [None]
  - Pruritus [None]
  - Rash [None]
  - Cellulitis [None]

NARRATIVE: CASE EVENT DATE: 20150306
